FAERS Safety Report 21481707 (Version 1)
Quarter: 2022Q4

REPORT INFORMATION
  Report Type: Report from Study
  Country: US (occurrence: US)
  Receive Date: 20221020
  Receipt Date: 20221020
  Transmission Date: 20230113
  Serious: Yes (Hospitalization, Other)
  Sender: FDA-Public Use
  Company Number: US-BoehringerIngelheim-2021-BI-079720

PATIENT
  Sex: Female

DRUGS (1)
  1. OFEV [Suspect]
     Active Substance: NINTEDANIB
     Indication: Idiopathic pulmonary fibrosis
     Route: 048
     Dates: start: 20150909

REACTIONS (6)
  - Spinal fracture [Unknown]
  - Dehydration [Unknown]
  - Seizure [Unknown]
  - Aggression [Unknown]
  - Liver function test increased [Unknown]
  - Headache [Unknown]
